FAERS Safety Report 13380590 (Version 1)
Quarter: 2017Q1

REPORT INFORMATION
  Report Type: Spontaneous
  Country: GB (occurrence: GB)
  Receive Date: 20170329
  Receipt Date: 20170329
  Transmission Date: 20170429
  Serious: Yes (Death)
  Sender: FDA-Public Use
  Company Number: GB-ACCORD-049504

PATIENT
  Age: 78 Year
  Sex: Female
  Weight: 33.3 kg

DRUGS (12)
  1. MIRTAZAPINE. [Concomitant]
     Active Substance: MIRTAZAPINE
     Indication: DEPRESSION
     Dosage: AT NIGHT.?SHE WAS DISCHARGED ON MIRTAZAPINE ORO-DISPERSIBLE TABLETS 15 MG AT NIGHT
  2. ADCAL-D3 [Concomitant]
     Active Substance: CALCIUM CARBONATE\CHOLECALCIFEROL
     Indication: OSTEOPOROSIS PROPHYLAXIS
  3. IRON [Concomitant]
     Active Substance: IRON
     Dosage: AN IRON CONTAINING TABLET
  4. PIROXICAM. [Concomitant]
     Active Substance: PIROXICAM
     Indication: ANALGESIC THERAPY
     Dosage: MORNINGS.
  5. AMITRIPTYLINE [Concomitant]
     Active Substance: AMITRIPTYLINE
     Indication: DEPRESSION
     Dosage: AT NIGHT. DOSE OF AMITRIPTYLINE WAS INCREASED ON ADMISSION TO 20MG.
     Dates: end: 20150801
  6. ACIDEX [Concomitant]
     Active Substance: CALCIUM CARBONATE\SODIUM ALGINATE\SODIUM BICARBONATE
  7. PREDNISOLONE. [Concomitant]
     Active Substance: PREDNISOLONE
     Indication: STEROID THERAPY
     Dosage: AT NIGHT.?STEROID TABLET.
  8. TRAMADOL/TRAMADOL HYDROCHLORIDE [Suspect]
     Active Substance: TRAMADOL HYDROCHLORIDE
     Indication: ARTHRALGIA
     Dosage: SHE RECEIVED 50 TO 300 MG (50,100,150,300) DOSE FROM 16 TO 25-SEP-2015
     Route: 048
     Dates: start: 20150925, end: 20150925
  9. RANITIDINE/RANITIDINE BISMUTH CITRATE/RANITIDINE HYDROCHLORIDE [Concomitant]
     Indication: GASTRITIS PROPHYLAXIS
     Dosage: A TABLET THAT PROTECTS THE LINING OF THE STOMACH
  10. PARACETAMOL [Concomitant]
     Active Substance: ACETAMINOPHEN
     Indication: PAIN
     Dosage: 1 OR 2 TABLETS UP TO FOUR TIMES A DAY
  11. RISEDRONIC ACID [Concomitant]
     Active Substance: RISEDRONIC ACID
     Indication: OSTEOPOROSIS
  12. SENNA ALEXANDRINA [Concomitant]
     Active Substance: SENNA LEAF
     Dosage: 7.5 MG UP TO TWICE A DAY, A LAXATIVE AND PEPTIC SUSPENSION 10 MLS AS REQUIRED

REACTIONS (1)
  - Ventricular arrhythmia [Fatal]

NARRATIVE: CASE EVENT DATE: 20150925
